FAERS Safety Report 21731874 (Version 1)
Quarter: 2022Q4

REPORT INFORMATION
  Report Type: Spontaneous
  Country: US (occurrence: US)
  Receive Date: 20221215
  Receipt Date: 20221215
  Transmission Date: 20230113
  Serious: No
  Sender: FDA-Public Use
  Company Number: US-ORGANON-O2211USA002135

PATIENT
  Age: 63 Year
  Sex: Female

DRUGS (1)
  1. ASMANEX [Suspect]
     Active Substance: MOMETASONE FUROATE
     Dosage: 1 PUFF (1 DOSAGE FORM),DAILY OF 60 METERED DOSE INHALER
     Dates: start: 20221112

REACTIONS (8)
  - Dyspnoea [Unknown]
  - Cough [Unknown]
  - Device malfunction [Unknown]
  - Poor quality device used [Unknown]
  - Device difficult to use [Unknown]
  - Product dose omission issue [Unknown]
  - Circumstance or information capable of leading to medication error [Unknown]
  - Wrong technique in device usage process [Unknown]

NARRATIVE: CASE EVENT DATE: 20221101
